FAERS Safety Report 21472202 (Version 1)
Quarter: 2022Q4

REPORT INFORMATION
  Report Type: Report from Study
  Country: ES (occurrence: ES)
  Receive Date: 20221018
  Receipt Date: 20221018
  Transmission Date: 20230113
  Serious: Yes (Life-Threatening, Hospitalization)
  Sender: FDA-Public Use
  Company Number: None

PATIENT
  Age: 67 Year
  Sex: Male

DRUGS (8)
  1. CARBOPLATIN [Suspect]
     Active Substance: CARBOPLATIN
     Indication: Product used for unknown indication
     Dosage: STRENGTH 10 MG/ML, CYCLES EVERY 3 WEEKS, 1?VIAL OF 15 ML
     Dates: start: 20220301
  2. ATEZOLIZUMAB [Suspect]
     Active Substance: ATEZOLIZUMAB
     Indication: Product used for unknown indication
     Dosage: STRENGTH 1200 MG, 1 VIAL
     Dates: start: 20220301
  3. ETOPOSIDE [Suspect]
     Active Substance: ETOPOSIDE
     Indication: Product used for unknown indication
     Dosage: STRENGTH 20MG/ML, 1 VIAL?OF 5 ML, CYCLES EVERY 3 WEEKS
     Dates: start: 20220301
  4. ATORVASTATIN [Concomitant]
     Active Substance: ATORVASTATIN
     Indication: Dyslipidaemia
     Dosage: 28 TABLETS, 1 COMP DAY, STRENGTH 20 MG
     Dates: start: 20210712
  5. ENALAPRIL [Concomitant]
     Active Substance: ENALAPRIL
     Indication: Hypertension
     Dosage: 1 COMP DAY, STRENGTH 20 MG TABLETS EFG, 28 TABLETS
  6. AMLODIPINE [Concomitant]
     Active Substance: AMLODIPINE BESYLATE
     Indication: Hypertension
     Dosage: 1 COMP DAY, STRENGTH 10 MG TABLETS EFG, 30 TABLETS
     Dates: start: 20160505, end: 20220330
  7. SPIRIVA RESPIMAT [Concomitant]
     Active Substance: TIOTROPIUM BROMIDE
     Indication: Chronic obstructive pulmonary disease
     Dosage: STRENGTH 2.5 MICROGRAMS, 1 CARTRIDGE OF 60?PUFFS (30 DOSES)
     Dates: start: 20220216
  8. IPRATROPIUM BROMIDE [Concomitant]
     Active Substance: IPRATROPIUM BROMIDE
     Indication: Chronic obstructive pulmonary disease
     Dosage: STRENGTH 20 MICROGRAMS 1 INHALER OF 200 DOSES
     Dates: start: 20220216

REACTIONS (3)
  - Asthenia [Recovered/Resolved]
  - Pancytopenia [Recovered/Resolved]
  - Neutropenia [Recovered/Resolved]

NARRATIVE: CASE EVENT DATE: 20220314
